FAERS Safety Report 18751931 (Version 1)
Quarter: 2021Q1

REPORT INFORMATION
  Report Type: Spontaneous
  Country: CN (occurrence: CN)
  Receive Date: 20210118
  Receipt Date: 20210118
  Transmission Date: 20210419
  Serious: Yes (Hospitalization)
  Sender: FDA-Public Use
  Company Number: CN-BAXTER-2021BAX000755

PATIENT
  Age: 61 Year
  Sex: Female
  Weight: 61 kg

DRUGS (2)
  1. ENDOXAN [Suspect]
     Active Substance: CYCLOPHOSPHAMIDE
     Indication: INVASIVE DUCTAL BREAST CARCINOMA
     Dosage: DAY 1
     Route: 041
     Dates: start: 20201212, end: 20201212
  2. NAB?PACLITAXEL [Suspect]
     Active Substance: PACLITAXEL
     Indication: INVASIVE DUCTAL BREAST CARCINOMA
     Dosage: DAY 1
     Route: 041
     Dates: start: 20201212, end: 20201212

REACTIONS (5)
  - Dysphagia [Recovering/Resolving]
  - Vomiting [Recovering/Resolving]
  - Hiccups [Recovering/Resolving]
  - Regurgitation [Recovering/Resolving]
  - Nausea [Recovering/Resolving]

NARRATIVE: CASE EVENT DATE: 20201212
